FAERS Safety Report 9303910 (Version 1)
Quarter: 2013Q3

REPORT INFORMATION
  Report Type: Spontaneous
  Country: CA (occurrence: None)
  Receive Date: 20130521
  Receipt Date: 20130521
  Transmission Date: 20140515
  Serious: Yes (Other)
  Sender: FDA-Public Use
  Company Number: None

PATIENT
  Age: 25 Year
  Sex: Female
  Weight: 53 kg

DRUGS (3)
  1. HELIUM [Suspect]
     Indication: LAPAROSCOPY
     Route: 033
  2. (ISOFLURANE) [Concomitant]
  3. (FENTANYL) [Concomitant]

REACTIONS (2)
  - Subcutaneous emphysema [None]
  - Pneumothorax [None]
